FAERS Safety Report 25988721 (Version 1)
Quarter: 2025Q4

REPORT INFORMATION
  Report Type: Spontaneous
  Country: US (occurrence: US)
  Receive Date: 20251103
  Receipt Date: 20251103
  Transmission Date: 20260118
  Serious: No
  Sender: RIGEL PHARMACEUTICALS
  Company Number: US-RIGEL PHARMACEUTICALS, INC-20250700161

PATIENT
  Age: 78 Year
  Sex: Female

DRUGS (2)
  1. GAVRETO [Suspect]
     Active Substance: PRALSETINIB
     Indication: Lung neoplasm malignant
     Dosage: 200 MG,QD
     Route: 048
  2. GAVRETO [Suspect]
     Active Substance: PRALSETINIB
     Dosage: 200 MG,QD
     Route: 048
     Dates: start: 20240829

REACTIONS (3)
  - Product dose omission issue [Unknown]
  - Product prescribing issue [Unknown]
  - Blood pressure increased [Unknown]

NARRATIVE: CASE EVENT DATE: 20240829
